FAERS Safety Report 4579747-2 (Version None)
Quarter: 2005Q1

REPORT INFORMATION
  Report Type: 
  Country: None (occurrence: None)
  Receive Date: 20050210
  Receipt Date: 20050210
  Transmission Date: 20050727
  Serious: Yes (Hospitalization)
  Sender: FDA-Public Use
  Company Number: None

PATIENT
  Age: 57 Year
  Sex: Male
  Weight: 61 kg

DRUGS (12)
  1. DULOXETINE  60MG LILLY [Suspect]
     Indication: DEPRESSION
     Dosage: 60MG  ONCE DAILY ORAL
     Route: 048
     Dates: start: 20050201, end: 20050206
  2. DULOXETINE  60MG LILLY [Suspect]
     Indication: PERIPHERAL VASCULAR DISORDER
     Dosage: 60MG  ONCE DAILY ORAL
     Route: 048
     Dates: start: 20050201, end: 20050206
  3. BISACODYL [Concomitant]
  4. LISINOPRIL [Concomitant]
  5. PRAVASTATIN [Concomitant]
  6. PIOGLITAZONE [Concomitant]
  7. PROTONIX [Concomitant]
  8. METOPROLOL TARTRATE [Concomitant]
  9. METFORMIN HCL [Concomitant]
  10. FRAGMIN [Concomitant]
  11. COUMADIN [Concomitant]
  12. INSULIN [Concomitant]

REACTIONS (1)
  - HYPONATRAEMIA [None]
